FAERS Safety Report 8972069 (Version 1)
Quarter: 2012Q4

REPORT INFORMATION
  Report Type: 
  Country: US (occurrence: US)
  Receive Date: 20121219
  Receipt Date: 20121219
  Transmission Date: 20130627
  Serious: No
  Sender: FDA-Public Use
  Company Number: US-009507513-1212USA006222

PATIENT
  Age: 58 None
  Sex: Male
  Weight: 85.26 kg

DRUGS (10)
  1. PEG-INTRON [Suspect]
     Dosage: 150 mcg/0.5ml, qw
     Route: 058
  2. VICTRELIS [Suspect]
     Dosage: 800 mg, tid
     Route: 048
  3. RIBAPAK [Suspect]
     Dosage: 1000 per day
  4. PRILOSEC [Concomitant]
  5. ADVAIR [Concomitant]
  6. VITAMINS (UNSPECIFIED) [Concomitant]
  7. COMBIVENT [Concomitant]
  8. ASCORBIC ACID [Concomitant]
  9. ASPIRIN [Concomitant]
  10. VITAMIN B50 [Concomitant]

REACTIONS (3)
  - Pain in jaw [Unknown]
  - Glossodynia [Unknown]
  - Headache [Unknown]
